FAERS Safety Report 4624686-1 (Version None)
Quarter: 2005Q1

REPORT INFORMATION
  Report Type: 
  Country: None (occurrence: None)
  Receive Date: 20050107
  Receipt Date: 20040908
  Transmission Date: 20050727
  Serious: No
  Sender: FDA-Public Use
  Company Number: 233629K04USA

PATIENT
  Age: 43 Year
  Sex: Female

DRUGS (1)
  1. REBIF [Suspect]
     Indication: MULTIPLE SCLEROSIS
     Dosage: 44 MCG, 3 IN 1 WEEKS

REACTIONS (4)
  - FATIGUE [None]
  - FEELING HOT AND COLD [None]
  - LIVER FUNCTION TEST ABNORMAL [None]
  - WEIGHT INCREASED [None]
